FAERS Safety Report 17528930 (Version 2)
Quarter: 2020Q1

REPORT INFORMATION
  Report Type: Spontaneous
  Country: CO (occurrence: CO)
  Receive Date: 20200311
  Receipt Date: 20200318
  Transmission Date: 20200409
  Serious: No
  Sender: FDA-Public Use
  Company Number: CO-UNITED THERAPEUTICS-UNT-2020-003764

PATIENT
  Age: 47 Year
  Sex: Female
  Weight: 50 kg

DRUGS (6)
  1. SILDENAFIL. [Concomitant]
     Active Substance: SILDENAFIL
     Indication: PULMONARY HYPERTENSION
     Dosage: 50 MG, Q8H
     Route: 048
     Dates: start: 20160505
  2. REMODULIN [Suspect]
     Active Substance: TREPROSTINIL
     Indication: PULMONARY ARTERIAL HYPERTENSION
     Dosage: 0.016 ?G/KG, CONTINUING, AT AN INFUSION RATE OF 0.018 ML/H
     Route: 058
     Dates: start: 20200204
  3. AMBRISENTAN [Concomitant]
     Active Substance: AMBRISENTAN
     Indication: PULMONARY ARTERIAL HYPERTENSION
     Dosage: 10 MG, EVERY 24 HRS
     Route: 048
     Dates: start: 20180615
  4. FUROSEMIDE. [Concomitant]
     Active Substance: FUROSEMIDE
     Indication: PULMONARY HYPERTENSION
     Dosage: 40 MG, EVERY 24 HOURS
     Route: 048
     Dates: start: 20180101
  5. IVABRADINA [Concomitant]
     Active Substance: IVABRADINE
     Indication: CARDIAC DISORDER
     Dosage: 5 MG, Q12H
     Route: 048
     Dates: start: 20190101
  6. WARFARIN [Concomitant]
     Active Substance: WARFARIN
     Indication: EMBOLISM
     Dosage: 10 MG, EVERY 24 HOURS
     Route: 048
     Dates: start: 20190303

REACTIONS (6)
  - Catheter site pain [Recovered/Resolved]
  - Catheter site erythema [Recovered/Resolved]
  - Catheter site induration [Recovered/Resolved]
  - Catheter site inflammation [Recovered/Resolved]
  - Bloody discharge [Recovered/Resolved]
  - Catheter site discharge [Recovered/Resolved]

NARRATIVE: CASE EVENT DATE: 20200228
